FAERS Safety Report 6171234-3 (Version None)
Quarter: 2009Q2

REPORT INFORMATION
  Report Type: 
  Country: None (occurrence: None)
  Receive Date: 20090428
  Receipt Date: 20090428
  Transmission Date: 20091009
  Serious: Yes (Life-Threatening, Other)
  Sender: FDA-Public Use
  Company Number: None

PATIENT
  Age: 22 Year
  Sex: Male
  Weight: 104.3273 kg

DRUGS (1)
  1. AMOXICILLIN AND CLAVULANATE POTASSIUM [Suspect]
     Indication: SINUSITIS
     Dosage: 875MG 2X DAILY PO
     Route: 048
     Dates: start: 20090424, end: 20090425

REACTIONS (3)
  - DIZZINESS [None]
  - DYSSTASIA [None]
  - NAUSEA [None]
